FAERS Safety Report 13106234 (Version 1)
Quarter: 2017Q1

REPORT INFORMATION
  Report Type: Report from Study
  Country: CA (occurrence: CA)
  Receive Date: 20170111
  Receipt Date: 20170111
  Transmission Date: 20170428
  Serious: Yes (Other)
  Sender: FDA-Public Use
  Company Number: PHHY2017CA003940

PATIENT
  Sex: Female

DRUGS (3)
  1. ACLASTA [Suspect]
     Active Substance: ZOLEDRONIC ACID
     Indication: OSTEOPOROSIS
     Dosage: 1 DF, (5/100 MG/ML), UNK
     Route: 042
     Dates: start: 20150121
  2. ACLASTA [Suspect]
     Active Substance: ZOLEDRONIC ACID
     Dosage: 1 DF, (5/100 MG/ML), UNK
     Route: 042
     Dates: start: 20160118
  3. ACLASTA [Suspect]
     Active Substance: ZOLEDRONIC ACID
     Dosage: 1 DF, (5/100 MG/ML), UNK
     Route: 042
     Dates: start: 20170107

REACTIONS (1)
  - Arrhythmia [Unknown]
